FAERS Safety Report 20701890 (Version 2)
Quarter: 2022Q2

REPORT INFORMATION
  Report Type: Report from Study
  Country: AU (occurrence: AU)
  Receive Date: 20220412
  Receipt Date: 20220620
  Transmission Date: 20220721
  Serious: Yes (Hospitalization)
  Sender: FDA-Public Use
  Company Number: AU-SEATTLE GENETICS-2022SGN03400

PATIENT
  Age: 74 Year
  Sex: Female
  Weight: 112 kg

DRUGS (15)
  1. BRENTUXIMAB VEDOTIN [Suspect]
     Active Substance: BRENTUXIMAB VEDOTIN
     Indication: Diffuse large B-cell lymphoma
     Route: 065
     Dates: start: 20211214, end: 20220325
  2. RITUXIMAB [Suspect]
     Active Substance: RITUXIMAB
     Indication: Diffuse large B-cell lymphoma refractory
     Dosage: UNK
     Route: 065
     Dates: start: 20211214, end: 20220325
  3. LENALIDOMIDE [Suspect]
     Active Substance: LENALIDOMIDE
     Indication: Diffuse large B-cell lymphoma refractory
     Dosage: UNK
     Route: 065
     Dates: start: 20211214, end: 20220325
  4. SYMBICORT [Concomitant]
     Active Substance: BUDESONIDE\FORMOTEROL FUMARATE DIHYDRATE
     Dosage: 200/6 UNK, BID
     Dates: start: 20210827
  5. ACETAMINOPHEN [Concomitant]
     Active Substance: ACETAMINOPHEN
     Dosage: 2 UNK, QD
     Dates: start: 2012
  6. FUROSEMIDE [Concomitant]
     Active Substance: FUROSEMIDE
     Dosage: 40 MG, QD
     Dates: start: 2015
  7. ESCITALOPRAM OXALATE [Concomitant]
     Active Substance: ESCITALOPRAM OXALATE
     Dosage: 20 MG, QD
     Dates: start: 2006
  8. NEXIUM I.V. [Concomitant]
     Active Substance: ESOMEPRAZOLE SODIUM
     Dosage: 20 MG, QD
     Dates: start: 2016
  9. ROSUVASTATIN CALCIUM [Concomitant]
     Active Substance: ROSUVASTATIN CALCIUM
     Dosage: 10 MG, QD
     Dates: start: 2015
  10. OXYCODONE HYDROCHLORIDE [Concomitant]
     Active Substance: OXYCODONE HYDROCHLORIDE
     Dosage: 10 MG, PRN
     Dates: start: 2020
  11. ALBUTEROL [Concomitant]
     Active Substance: ALBUTEROL
     Dosage: 1-2 PUFF, PRN
     Dates: start: 2016
  12. METOCLOPRAMIDE [Concomitant]
     Active Substance: METOCLOPRAMIDE
     Dosage: 10 MG, PRN
     Dates: start: 2020
  13. RIVAROXABAN [Concomitant]
     Active Substance: RIVAROXABAN
     Dosage: 10 MG, QD
     Dates: start: 202111
  14. GLUCOSAMINE [Concomitant]
     Active Substance: GLUCOSAMINE
     Dosage: 1500 MG, QD
     Dates: start: 2018
  15. VITAMIN C [Concomitant]
     Active Substance: ASCORBIC ACID
     Dosage: 1000 MG, QD
     Dates: start: 2019

REACTIONS (2)
  - Periorbital haematoma [Not Recovered/Not Resolved]
  - Thrombocytopenia [Not Recovered/Not Resolved]

NARRATIVE: CASE EVENT DATE: 20220404
